FAERS Safety Report 26155000 (Version 1)
Quarter: 2025Q4

REPORT INFORMATION
  Report Type: Spontaneous
  Country: GB (occurrence: GB)
  Receive Date: 20251215
  Receipt Date: 20251215
  Transmission Date: 20260117
  Serious: Yes (Other)
  Sender: ACCORD
  Company Number: None

PATIENT
  Age: 80 Year
  Sex: Male
  Weight: 111 kg

DRUGS (12)
  1. ATORVASTATIN [Suspect]
     Active Substance: ATORVASTATIN
     Indication: Ill-defined disorder
     Dosage: TAKE ONE DAILY IN THE EVENING TO LOWER CHOLESTEROL
     Dates: start: 20251003
  2. ALGINATE [Concomitant]
     Indication: Ill-defined disorder
     Dosage: 10ML-20ML 4 TIMES/DAY
     Dates: start: 20250717
  3. BECLOMETHASONE DIPROPIONATE [Concomitant]
     Active Substance: BECLOMETHASONE DIPROPIONATE
     Indication: Ill-defined disorder
     Dosage: TWO PUFFS TWICE DAILY
     Dates: start: 20250717, end: 20251003
  4. CARBOXYMETHYLCELLULOSE [Concomitant]
     Active Substance: CARBOXYMETHYLCELLULOSE
     Indication: Ill-defined disorder
     Dosage: APPLY 2-3 TIMES A DAY
     Dates: start: 20250717
  5. FEXOFENADINE [Concomitant]
     Active Substance: FEXOFENADINE HYDROCHLORIDE
     Indication: Ill-defined disorder
     Dosage: TAKE ONE DAILY TO SUPPRESS ALLERGIC SYMPTOMS
     Dates: start: 20250717
  6. BECLOMETHASONE\FORMOTEROL [Concomitant]
     Active Substance: BECLOMETHASONE\FORMOTEROL
     Indication: Ill-defined disorder
     Dosage: INHALE TWO PUFFS TWICE DAILY
     Dates: start: 20250717
  7. FUROSEMIDE [Concomitant]
     Active Substance: FUROSEMIDE
     Indication: Ill-defined disorder
     Dosage: TAKE ONE EACH MORNING
     Dates: start: 20250717
  8. LOSARTAN [Concomitant]
     Active Substance: LOSARTAN
     Indication: Ill-defined disorder
     Dosage: TAKE ONE DAILY
     Dates: start: 20250717
  9. MONTELUKAST [Concomitant]
     Active Substance: MONTELUKAST
     Indication: Ill-defined disorder
     Dosage: TAKE ONE AT NIGHT
     Dates: start: 20250717
  10. ALBUTEROL [Concomitant]
     Active Substance: ALBUTEROL
     Indication: Ill-defined disorder
     Dosage: INHALE 2 DOSES AS NEEDED
     Dates: start: 20250717
  11. TAMSULOSIN HYDROCHLORIDE [Concomitant]
     Active Substance: TAMSULOSIN HYDROCHLORIDE
     Indication: Ill-defined disorder
     Dosage: ONE DAILY
     Dates: start: 20250717
  12. FLUTICASONE [Concomitant]
     Active Substance: FLUTICASONE
     Indication: Ill-defined disorder
     Dosage: TWO SPRAYS INTO EACH NOSTRIL ONCE A DAY. WHEN C
     Dates: start: 20251003

REACTIONS (2)
  - Arthralgia [Recovered/Resolved]
  - Joint stiffness [Recovered/Resolved]
